FAERS Safety Report 5782833-2 (Version None)
Quarter: 2008Q2

REPORT INFORMATION
  Report Type: 
  Country: None (occurrence: None)
  Receive Date: 20080624
  Receipt Date: 20080614
  Transmission Date: 20081010
  Serious: Yes (Other)
  Sender: FDA-Public Use
  Company Number: DE-BAYER-200820688GPV

PATIENT
  Age: 21 Year
  Sex: Male

DRUGS (11)
  1. FLUDARABINE [Suspect]
     Indication: STEM CELL TRANSPLANT
  2. CYCLOPHOSPHAMIDE [Suspect]
     Indication: STEM CELL TRANSPLANT
  3. THYMOGLOBULIN [Suspect]
     Indication: STEM CELL TRANSPLANT
  4. CYCLOSPORINE [Suspect]
     Indication: APLASTIC ANAEMIA
  5. STEROIDS [Suspect]
     Indication: APLASTIC ANAEMIA
  6. FLUORCHINOLONE PROPHYLAXIS [Concomitant]
     Indication: PROPHYLAXIS
  7. PENTAMIDINE [Concomitant]
     Indication: ANTIFUNGAL PROPHYLAXIS
     Route: 055
  8. TRIMETHOPRIM + SULFAMETHOXAZOLE [Concomitant]
     Indication: DRUG USE FOR UNKNOWN INDICATION
  9. ACYCLOVIR SODIUM [Concomitant]
     Indication: ANTIVIRAL PROPHYLAXIS
  10. HEPARIN [Concomitant]
     Indication: PROPHYLAXIS
  11. METHOTREXATE [Concomitant]
     Indication: PROPHYLAXIS AGAINST GRAFT VERSUS HOST DISEASE

REACTIONS (1)
  - ACUTE GRAFT VERSUS HOST DISEASE [None]
